FAERS Safety Report 20576470 (Version 2)
Quarter: 2022Q2

REPORT INFORMATION
  Report Type: Spontaneous
  Country: JP (occurrence: None)
  Receive Date: 20220310
  Receipt Date: 20220407
  Transmission Date: 20220721
  Serious: Yes (Other)
  Sender: FDA-Public Use
  Company Number: JP-Orion Corporation ORION PHARMA-ENTC2022-0051

PATIENT

DRUGS (1)
  1. STALEVO [Suspect]
     Active Substance: CARBIDOPA\ENTACAPONE\LEVODOPA
     Indication: Product used for unknown indication
     Dosage: 1DF: LEVODOPA UNKNOWN- CARBIDOPA UNKNOWN-ENTACAPONE 100MG
     Route: 048

REACTIONS (2)
  - Renal impairment [Unknown]
  - Drug level increased [Unknown]
